FAERS Safety Report 4416035-9 (Version None)
Quarter: 2004Q3

REPORT INFORMATION
  Report Type: 
  Country: None (occurrence: None)
  Receive Date: 20040804
  Receipt Date: 20040804
  Transmission Date: 20050211
  Serious: Yes (Hospitalization)
  Sender: FDA-Public Use
  Company Number: None

PATIENT
  Age: 81 Year
  Sex: Male
  Weight: 86.1834 kg

DRUGS (1)
  1. PANLOR SS 712.8.60 32 MG [Suspect]
     Indication: POSTOPERATIVE ANALGESIA
     Dosage: 1 EVERY 4 HRS AS NEEDED

REACTIONS (6)
  - ASTHENIA [None]
  - HEART RATE INCREASED [None]
  - HYPERHIDROSIS [None]
  - HYPOTENSION [None]
  - LOSS OF CONSCIOUSNESS [None]
  - POST PROCEDURAL COMPLICATION [None]
